FAERS Safety Report 5874029-0 (Version None)
Quarter: 2008Q3

REPORT INFORMATION
  Report Type: 
  Country: None (occurrence: None)
  Receive Date: 20080908
  Receipt Date: 20080828
  Transmission Date: 20090109
  Serious: Yes (Hospitalization, Other)
  Sender: FDA-Public Use
  Company Number: US-ROCHE-583332

PATIENT
  Age: 15 Year
  Sex: Male

DRUGS (7)
  1. ACCUTANE [Suspect]
     Indication: ACNE
     Route: 065
     Dates: start: 20080701, end: 20080828
  2. CELLCEPT [Suspect]
     Indication: NEPHROTIC SYNDROME
     Route: 048
     Dates: start: 20050101
  3. CELLCEPT [Suspect]
     Route: 048
     Dates: start: 20071001
  4. CELLCEPT [Suspect]
     Route: 048
     Dates: end: 20080724
  5. PREDNISONE TAB [Suspect]
     Indication: NEPHROTIC SYNDROME
     Dosage: TAKEN EVERY OTHER DAY.
     Route: 065
     Dates: start: 20050101
  6. PREDNISONE TAB [Suspect]
     Route: 065
  7. PREDNISONE TAB [Suspect]
     Route: 065
     Dates: start: 20080701, end: 20080724

REACTIONS (3)
  - ACNE [None]
  - NEPHROTIC SYNDROME [None]
  - RENAL FAILURE ACUTE [None]
